FAERS Safety Report 5226502-6 (Version None)
Quarter: 2007Q1

REPORT INFORMATION
  Report Type: 
  Country: None (occurrence: None)
  Receive Date: 20070201
  Receipt Date: 20070117
  Transmission Date: 20070707
  Serious: Yes (Hospitalization)
  Sender: FDA-Public Use
  Company Number: DE-AMGEN-UK207371

PATIENT
  Sex: Female

DRUGS (4)
  1. NEULASTA [Suspect]
     Indication: CHEMOTHERAPY
     Route: 042
     Dates: start: 20061207, end: 20061207
  2. DOCETAXEL [Suspect]
     Route: 042
     Dates: start: 20061206, end: 20061206
  3. DOXORUBICIN HYDROCHLORIDE [Suspect]
     Route: 042
     Dates: start: 20061206, end: 20061206
  4. CYCLOPHOSPHAMIDE [Suspect]
     Route: 042
     Dates: start: 20061206, end: 20061206

REACTIONS (7)
  - ASTHENIA [None]
  - CARDIAC DISORDER [None]
  - DYSPNOEA [None]
  - NAUSEA [None]
  - ORAL INTAKE REDUCED [None]
  - PULMONARY EMBOLISM [None]
  - WEIGHT DECREASED [None]
